FAERS Safety Report 4788071-4 (Version None)
Quarter: 2005Q4

REPORT INFORMATION
  Report Type: 
  Country: None (occurrence: None)
  Receive Date: 20051004
  Receipt Date: 20051004
  Transmission Date: 20060501
  Serious: Yes (Hospitalization, Disabling)
  Sender: FDA-Public Use
  Company Number: None

PATIENT
  Age: 85 Year
  Sex: Female
  Weight: 45.3597 kg

DRUGS (2)
  1. PRILOSEC OTC [Suspect]
     Dosage: 1 A DAY PO
     Route: 048
  2. DETROL [Suspect]
     Dosage: 1 A DAY  PO
     Route: 048

REACTIONS (14)
  - ASTHENIA [None]
  - CHOKING [None]
  - CONDITION AGGRAVATED [None]
  - CONSTIPATION [None]
  - CONTRAINDICATION TO MEDICAL TREATMENT [None]
  - DEHYDRATION [None]
  - DIZZINESS [None]
  - DYSPHAGIA [None]
  - INFLUENZA [None]
  - LACRIMATION INCREASED [None]
  - RHINORRHOEA [None]
  - SINUSITIS [None]
  - THROAT IRRITATION [None]
  - WEIGHT DECREASED [None]
